FAERS Safety Report 8332007-6 (Version None)
Quarter: 2012Q2

REPORT INFORMATION
  Report Type: 
  Country: None (occurrence: None)
  Receive Date: 20120502
  Receipt Date: 20120426
  Transmission Date: 20120825
  Serious: No
  Sender: FDA-Public Use
  Company Number: US-AMGEN-USASP2012024590

PATIENT
  Age: 59 Year
  Sex: Female
  Weight: 71.655 kg

DRUGS (2)
  1. METHOTREXATE [Concomitant]
     Dosage: 20 MG, QWK (8 TABLETS OF 2.5 MG)
     Route: 048
     Dates: start: 19990621
  2. ENBREL [Suspect]
     Indication: RHEUMATOID ARTHRITIS
     Dosage: 50 MG, EVERY MONDAY
     Route: 058
     Dates: start: 20120305

REACTIONS (4)
  - INJECTION SITE PRURITUS [None]
  - INJECTION SITE ERYTHEMA [None]
  - INJECTION SITE URTICARIA [None]
  - INJECTION SITE REACTION [None]
